FAERS Safety Report 26049286 (Version 1)
Quarter: 2025Q4

REPORT INFORMATION
  Report Type: Report from Study
  Country: US (occurrence: US)
  Receive Date: 20251115
  Receipt Date: 20251115
  Transmission Date: 20260118
  Serious: Yes (Other)
  Sender: ABBVIE
  Company Number: US-ABBVIE-6543836

PATIENT
  Sex: Female

DRUGS (1)
  1. SKYRIZI [Suspect]
     Active Substance: RISANKIZUMAB-RZAA
     Indication: Psoriasis
     Route: 058
     Dates: start: 20220523

REACTIONS (6)
  - Intestinal perforation [Recovering/Resolving]
  - Rash pruritic [Not Recovered/Not Resolved]
  - Irritable bowel syndrome [Recovered/Resolved]
  - Rash [Not Recovered/Not Resolved]
  - Therapeutic response unexpected [Recovered/Resolved]
  - Abdominal pain upper [Not Recovered/Not Resolved]

NARRATIVE: CASE EVENT DATE: 20220101
